FAERS Safety Report 8555448-0 (Version None)
Quarter: 2012Q3

REPORT INFORMATION
  Report Type: 
  Country: None (occurrence: None)
  Receive Date: 20120731
  Receipt Date: 20110825
  Transmission Date: 20120928
  Serious: Yes (Other)
  Sender: FDA-Public Use
  Company Number: US-ASTRAZENECA-2011SE12489

PATIENT
  Sex: Female

DRUGS (5)
  1. INDERAL LA [Concomitant]
     Dates: start: 20030926
  2. BENZTROPINE MES [Concomitant]
     Dates: start: 20030823
  3. SEROQUEL [Suspect]
     Dosage: 100 - 200 MG
     Route: 048
     Dates: start: 20030809
  4. HYDROCODONE BITARTRATE AND ACETAMINOPHEN [Concomitant]
     Dosage: 2.5-500 TAKE 1 OR 2 TABLET(S) EVERY 4 TO 6
     Dates: start: 20030805
  5. CYPROHEPTADINE HCL [Concomitant]
     Dates: start: 20030823

REACTIONS (3)
  - TYPE 2 DIABETES MELLITUS [None]
  - DIABETIC COMA [None]
  - PANCREATITIS [None]
